FAERS Safety Report 5036799-3 (Version None)
Quarter: 2006Q2

REPORT INFORMATION
  Report Type: 
  Country: None (occurrence: None)
  Receive Date: 20060626
  Receipt Date: 20060605
  Transmission Date: 20061013
  Serious: Yes (Other)
  Sender: FDA-Public Use
  Company Number: S06-FRA-02374-01

PATIENT
  Age: 62 Year
  Sex: Female

DRUGS (2)
  1. SEROPLEX (ESCITALOPRAM) [Suspect]
     Dates: start: 20060208, end: 20060501
  2. ATARAX [Concomitant]

REACTIONS (4)
  - SKIN BURNING SENSATION [None]
  - SKIN DISCOLOURATION [None]
  - SKIN INFLAMMATION [None]
  - VASCULAR SKIN DISORDER [None]
